FAERS Safety Report 11495967 (Version 5)
Quarter: 2016Q1

REPORT INFORMATION
  Report Type: Report from Study
  Country: KR (occurrence: KR)
  Receive Date: 20150911
  Receipt Date: 20160114
  Transmission Date: 20160525
  Serious: Yes (Death, Hospitalization)
  Sender: FDA-Public Use
  Company Number: KR-CELGENE-KOR-2015086870

PATIENT
  Age: 70 Year
  Sex: Female
  Weight: 49.2 kg

DRUGS (48)
  1. TYLENOL [Concomitant]
     Active Substance: ACETAMINOPHEN
     Indication: BACK PAIN
     Route: 048
     Dates: start: 20150512, end: 20150518
  2. ASPIRIN. [Concomitant]
     Active Substance: ASPIRIN
     Indication: HYPERTENSION
     Dosage: 400 MILLIGRAM
     Route: 048
     Dates: start: 20140826
  3. PANCRON [Concomitant]
     Indication: DECREASED APPETITE
     Dosage: 2 TABLET
     Route: 048
     Dates: start: 20141104, end: 20150615
  4. ULTRACET [Concomitant]
     Active Substance: ACETAMINOPHEN\TRAMADOL HYDROCHLORIDE
     Indication: PAIN IN EXTREMITY
     Route: 048
     Dates: start: 20150612, end: 20150706
  5. HERBEN [Concomitant]
     Dosage: 30 MILLIGRAM
     Route: 048
     Dates: start: 20150601, end: 20150709
  6. ULCERMIN [Concomitant]
     Active Substance: SUCRALFATE
     Indication: DYSPEPSIA
     Route: 048
     Dates: start: 20150517, end: 20150517
  7. PANTOPRAZOLE [Concomitant]
     Active Substance: PANTOPRAZOLE SODIUM
     Route: 041
     Dates: start: 20150706, end: 20150714
  8. PANTOPRAZOLE [Concomitant]
     Active Substance: PANTOPRAZOLE SODIUM
     Route: 041
     Dates: start: 20150517, end: 20150602
  9. ALLOPURINOL. [Concomitant]
     Active Substance: ALLOPURINOL
     Indication: GOUT
     Route: 048
     Dates: start: 20150612, end: 20150615
  10. REVLIMID [Suspect]
     Active Substance: LENALIDOMIDE
     Indication: PLASMA CELL MYELOMA
     Route: 048
     Dates: start: 20150513
  11. DEXAMETHASONE. [Suspect]
     Active Substance: DEXAMETHASONE
     Route: 041
     Dates: start: 20150706, end: 20150706
  12. MVH [Concomitant]
     Active Substance: VITAMINS
     Indication: NUTRITIONAL SUPPLEMENTATION
     Dosage: VIRAL
     Route: 041
     Dates: start: 20150612, end: 20150616
  13. MVH [Concomitant]
     Active Substance: VITAMINS
     Dosage: VIRAL
     Route: 041
     Dates: start: 20150620, end: 20150621
  14. HALCION [Concomitant]
     Active Substance: TRIAZOLAM
     Indication: INSOMNIA
     Route: 048
     Dates: start: 20150624, end: 20150624
  15. REVLIMID [Suspect]
     Active Substance: LENALIDOMIDE
     Route: 048
     Dates: start: 20150624, end: 201507
  16. DEXAMETHASONE. [Suspect]
     Active Substance: DEXAMETHASONE
     Route: 041
     Dates: start: 20140711, end: 20140711
  17. DEXAMETHASONE. [Suspect]
     Active Substance: DEXAMETHASONE
     Route: 048
     Dates: start: 20150513
  18. LACTICARE [Concomitant]
     Indication: RASH
     Dosage: BT
     Route: 061
     Dates: start: 20150613, end: 20150707
  19. MAGNESIUM OXIDE. [Concomitant]
     Active Substance: MAGNESIUM OXIDE
     Indication: CONSTIPATION PROPHYLAXIS
     Route: 048
     Dates: start: 20150620, end: 20150624
  20. PMS-NYSTATIN [Concomitant]
     Indication: PROPHYLAXIS
     Route: 048
     Dates: start: 20150629, end: 20150629
  21. PMS-NYSTATIN [Concomitant]
     Route: 048
     Dates: start: 20150701, end: 20150709
  22. PANTOPRAZOLE [Concomitant]
     Active Substance: PANTOPRAZOLE SODIUM
     Indication: DYSPEPSIA
     Route: 041
     Dates: start: 20150612, end: 20150629
  23. NOVO RAPID VIAL [Concomitant]
     Route: 041
     Dates: start: 20150526, end: 20150602
  24. ALLOPURINOL. [Concomitant]
     Active Substance: ALLOPURINOL
     Route: 048
     Dates: start: 20150511, end: 20150522
  25. DUPHALAC [Concomitant]
     Active Substance: LACTULOSE
     Indication: CONSTIPATION PROPHYLAXIS
     Dosage: 2.5 MILLIGRAM
     Route: 048
     Dates: start: 20150613, end: 20150615
  26. HERBEN [Concomitant]
     Route: 048
     Dates: start: 20150615, end: 20150615
  27. HERBEN [Concomitant]
     Route: 048
     Dates: start: 20150617, end: 20150709
  28. EBASTINE [Concomitant]
     Active Substance: EBASTINE
     Indication: RASH
     Route: 048
     Dates: start: 20150613, end: 20150619
  29. PANTOPRAZOLE [Concomitant]
     Active Substance: PANTOPRAZOLE SODIUM
     Dosage: 3 TABLESPOON
     Route: 041
     Dates: start: 20150706, end: 20150706
  30. DEXAMETHASONE. [Suspect]
     Active Substance: DEXAMETHASONE
     Indication: PLASMA CELL MYELOMA
     Route: 041
     Dates: start: 20150712, end: 20150712
  31. DEXAMETHASONE. [Suspect]
     Active Substance: DEXAMETHASONE
     Indication: PROPHYLAXIS OF NAUSEA AND VOMITING
     Route: 041
     Dates: start: 20150623, end: 20150623
  32. DEXAMETHASONE. [Suspect]
     Active Substance: DEXAMETHASONE
     Route: 041
     Dates: start: 20140713, end: 20140714
  33. SEPTRIN [Concomitant]
     Active Substance: SULFAMETHOXAZOLE\TRIMETHOPRIM
     Indication: UPPER RESPIRATORY TRACT INFECTION
     Route: 048
     Dates: start: 20150515
  34. ADCAL [Concomitant]
     Route: 048
     Dates: start: 20150517
  35. METRONIDAZOLE. [Concomitant]
     Active Substance: METRONIDAZOLE
     Indication: RASH
     Route: 048
     Dates: start: 20150616, end: 20150621
  36. HERBEN [Concomitant]
     Indication: HYPERTENSION
     Route: 041
     Dates: start: 20150615, end: 20150615
  37. DUROGESIC DTRANS [Concomitant]
     Active Substance: FENTANYL
     Indication: BACK PAIN
     Dosage: MCG
     Route: 061
     Dates: start: 20150602, end: 20150619
  38. DEXAMETHASONE. [Suspect]
     Active Substance: DEXAMETHASONE
     Route: 041
     Dates: start: 20150627, end: 20150627
  39. NOVO RAPID VIAL [Concomitant]
     Indication: DIABETES MELLITUS
     Route: 065
     Dates: start: 20150524, end: 20150525
  40. ADCAL [Concomitant]
     Indication: BLOOD CALCIUM
     Dosage: 2
     Route: 048
     Dates: start: 20140826
  41. TASNA [Concomitant]
     Indication: DYSPEPSIA
     Route: 048
     Dates: start: 20150516, end: 20150702
  42. MOTILITONE [Concomitant]
     Active Substance: HERBALS
     Indication: DYSPEPSIA
     Route: 048
     Dates: start: 20150524, end: 20150524
  43. DUROGESIC DTRANS [Concomitant]
     Active Substance: FENTANYL
     Dosage: MCG
     Route: 061
     Dates: start: 20150529, end: 20150601
  44. VITAMIN B-COMPLEX [Concomitant]
     Active Substance: DEXPANTHENOL\NIACINAMIDE\PYRIDOXINE HYDROCHLORIDE\RIBOFLAVIN 5^-PHOSPHATE SODIUM\THIAMINE HYDROCHLORIDE
     Indication: VITAMIN SUPPLEMENTATION
     Route: 048
     Dates: start: 20140826, end: 20150615
  45. MVH [Concomitant]
     Active Substance: VITAMINS
     Dosage: VIRAL
     Route: 041
     Dates: start: 20150706, end: 20150710
  46. TRIMEBUTINE [Concomitant]
     Active Substance: TRIMEBUTINE
     Indication: DYSPEPSIA
     Route: 048
     Dates: start: 20150623, end: 20150626
  47. ALLOPURINOL. [Concomitant]
     Active Substance: ALLOPURINOL
     Route: 048
     Dates: start: 20150703, end: 20150703
  48. DEXAMETHASONE. [Suspect]
     Active Substance: DEXAMETHASONE
     Route: 041
     Dates: start: 20150711, end: 20150711

REACTIONS (8)
  - Pyrexia [Recovered/Resolved]
  - Neutropenia [Recovered/Resolved]
  - Plasma cell myeloma [Fatal]
  - Nausea [Recovered/Resolved]
  - Oedema [Not Recovered/Not Resolved]
  - Abdominal pain lower [Recovered/Resolved]
  - Hepatic enzyme increased [Recovered/Resolved]
  - Nausea [Recovered/Resolved]

NARRATIVE: CASE EVENT DATE: 20150524
